FAERS Safety Report 5311052-9 (Version None)
Quarter: 2007Q2

REPORT INFORMATION
  Report Type: 
  Country: None (occurrence: None)
  Receive Date: 20070427
  Receipt Date: 20070427
  Transmission Date: 20071010
  Serious: Yes (Other)
  Sender: FDA-Public Use
  Company Number: None

PATIENT
  Age: 84 Year
  Sex: Female
  Weight: 33.5662 kg

DRUGS (1)
  1. AMBIEN [Suspect]
     Dosage: 5MG
     Dates: start: 20070423

REACTIONS (5)
  - ABNORMAL SLEEP-RELATED EVENT [None]
  - CONFUSIONAL STATE [None]
  - DISORIENTATION [None]
  - FALL [None]
  - HAEMORRHAGE [None]
